FAERS Safety Report 20775823 (Version 1)
Quarter: 2022Q2

REPORT INFORMATION
  Report Type: Report from Study
  Country: FR (occurrence: FR)
  Receive Date: 20220502
  Receipt Date: 20220502
  Transmission Date: 20220721
  Serious: Yes (Other)
  Sender: FDA-Public Use
  Company Number: FR-MYLANLABS-2022M1030967

PATIENT
  Age: 59 Year
  Sex: Female

DRUGS (2)
  1. HULIO [Suspect]
     Active Substance: ADALIMUMAB-FKJP
     Indication: Crohn^s disease
     Dosage: 40 MILLIGRAM
  2. HULIO [Suspect]
     Active Substance: ADALIMUMAB-FKJP
     Dosage: 160 MILLIGRAM
     Dates: start: 20220111

REACTIONS (8)
  - Rectal haemorrhage [Recovered/Resolved]
  - Constipation [Unknown]
  - Orthostatic hypotension [Not Recovered/Not Resolved]
  - Neck pain [Unknown]
  - Flank pain [Unknown]
  - Dizziness [Not Recovered/Not Resolved]
  - Depression [Unknown]
  - Headache [Unknown]

NARRATIVE: CASE EVENT DATE: 20220111
